FAERS Safety Report 7923027-1 (Version None)
Quarter: 2011Q4

REPORT INFORMATION
  Report Type: 
  Country: None (occurrence: None)
  Receive Date: 20111117
  Receipt Date: 20110127
  Transmission Date: 20120403
  Serious: No
  Sender: FDA-Public Use
  Company Number: US-AMGEN-USASP2010002210

PATIENT
  Age: 9 Year
  Sex: Male

DRUGS (3)
  1. ENBREL [Suspect]
     Indication: JUVENILE ARTHRITIS
     Dosage: 25 MG, 2 TIMES/WK
     Dates: start: 20100904
  2. TREXALL [Concomitant]
     Dates: start: 20100501
  3. ENBREL [Suspect]
     Dates: start: 20100904

REACTIONS (16)
  - ABDOMINAL PAIN UPPER [None]
  - MOBILITY DECREASED [None]
  - ARTHRALGIA [None]
  - INJECTION SITE PAIN [None]
  - INJECTION SITE PRURITUS [None]
  - JOINT STIFFNESS [None]
  - ABDOMINAL DISTENSION [None]
  - ABDOMINAL DISCOMFORT [None]
  - INJECTION SITE SWELLING [None]
  - DIZZINESS [None]
  - INJECTION SITE HAEMATOMA [None]
  - WRONG TECHNIQUE IN DRUG USAGE PROCESS [None]
  - INJECTION SITE ERYTHEMA [None]
  - INJECTION SITE REACTION [None]
  - BACK PAIN [None]
  - INJECTION SITE URTICARIA [None]
